FAERS Safety Report 18115810 (Version 4)
Quarter: 2020Q3

REPORT INFORMATION
  Report Type: Spontaneous
  Country: BR (occurrence: BR)
  Receive Date: 20200805
  Receipt Date: 20200901
  Transmission Date: 20201103
  Serious: Yes (Hospitalization, Other)
  Sender: FDA-Public Use
  Company Number: BR-SA-2020SA192341

PATIENT

DRUGS (10)
  1. OXALIPLATIN. [Suspect]
     Active Substance: OXALIPLATIN
     Dosage: 140 MG, QCY
     Dates: start: 2016, end: 2016
  2. OXALIPLATIN. [Suspect]
     Active Substance: OXALIPLATIN
     Indication: COLORECTAL CANCER RECURRENT
     Dosage: 140 MG, QCY
     Dates: start: 2016, end: 2016
  3. OXALIPLATIN. [Suspect]
     Active Substance: OXALIPLATIN
     Dosage: 140 MG, QCY
     Dates: start: 2016, end: 2016
  4. OXALIPLATIN. [Suspect]
     Active Substance: OXALIPLATIN
     Dosage: 140 MG, QCY
     Dates: start: 2016, end: 2016
  5. OXALIPLATIN. [Suspect]
     Active Substance: OXALIPLATIN
     Dosage: THIRD PROTOCOL, COMBINATION THERAPY; 100 ML INFUSION
     Dates: start: 201601, end: 201607
  6. IRINOTECAN [Concomitant]
     Active Substance: IRINOTECAN
     Indication: COLORECTAL CANCER RECURRENT
     Dosage: THIRD PROTOCOL, COMBINATION THERAPY
     Dates: start: 201601, end: 201607
  7. OXALIPLATIN. [Suspect]
     Active Substance: OXALIPLATIN
     Indication: COLORECTAL CANCER
     Dosage: 140 MG, QCY
     Dates: start: 2016, end: 2016
  8. OXALIPLATIN. [Suspect]
     Active Substance: OXALIPLATIN
     Dosage: AT INTERVALS OF 15 DAYS BETWEEN CYCLES; FLOX PROTOCOL
     Dates: start: 201504, end: 201511
  9. OXALIPLATIN. [Suspect]
     Active Substance: OXALIPLATIN
     Indication: CHEMOTHERAPY
     Dosage: 140 MG, QCY
     Dates: start: 2016, end: 2016
  10. IRINOTECAN [Concomitant]
     Active Substance: IRINOTECAN
     Indication: COLORECTAL CANCER
     Dosage: 340 MG, QCY
     Dates: start: 2016

REACTIONS (18)
  - Chest pain [Unknown]
  - Hepatic mass [Recovered/Resolved]
  - Infusion site reaction [Recovering/Resolving]
  - Papule [Recovered/Resolved]
  - Vomiting [Unknown]
  - Alanine aminotransferase increased [Recovered/Resolved]
  - Flushing [Unknown]
  - Drug-induced liver injury [Recovered/Resolved]
  - Hepatic lesion [Recovered/Resolved]
  - Anxiety [Unknown]
  - Palpitations [Unknown]
  - Urticaria thermal [Recovered/Resolved]
  - Pain [Unknown]
  - Urticarial dermatitis [Recovered/Resolved]
  - Carcinoembryonic antigen increased [Unknown]
  - Aspartate aminotransferase increased [Recovered/Resolved]
  - Abdominal discomfort [Unknown]
  - Pruritus [Recovered/Resolved]

NARRATIVE: CASE EVENT DATE: 2016
